FAERS Safety Report 9772364 (Version 1)
Quarter: 2013Q4

REPORT INFORMATION
  Report Type: Spontaneous
  Country: BR (occurrence: BR)
  Receive Date: 20131219
  Receipt Date: 20131219
  Transmission Date: 20140711
  Serious: Yes (Hospitalization)
  Sender: FDA-Public Use
  Company Number: BR-ELI_LILLY_AND_COMPANY-BR201312005013

PATIENT
  Age: 57 Year
  Sex: Female
  Weight: 86 kg

DRUGS (8)
  1. HUMULIN N [Suspect]
     Indication: PRODUCT USED FOR UNKNOWN INDICATION
     Dosage: 10 IU, EACH MORNING
     Route: 058
  2. HUMULIN N [Suspect]
     Dosage: 10 IU, EACH EVENING
     Route: 058
  3. HUMULIN N [Suspect]
     Dosage: 14 IU, EACH MORNING
     Route: 058
  4. HUMULIN N [Suspect]
     Dosage: 10 IU, EACH EVENING
     Route: 058
  5. ATENOLOL [Concomitant]
     Indication: BLOOD PRESSURE
     Dosage: UNK, UNKNOWN
     Route: 065
  6. METFORMINA [Concomitant]
     Indication: DIABETES MELLITUS
     Dosage: UNK, UNKNOWN
     Route: 065
  7. ENALAPRIL [Concomitant]
     Indication: BLOOD PRESSURE
     Dosage: UNK, UNKNOWN
     Route: 065
  8. ASPIRINA [Concomitant]
     Indication: PROPHYLAXIS
     Dosage: UNK, UNKNOWN
     Route: 065

REACTIONS (5)
  - Lower respiratory tract infection bacterial [Unknown]
  - Kidney infection [Unknown]
  - Injection site pain [Unknown]
  - Malaise [Unknown]
  - Blood glucose abnormal [Recovering/Resolving]
